FAERS Safety Report 23783739 (Version 1)
Quarter: 2024Q2

REPORT INFORMATION
  Report Type: Other
  Country: JP (occurrence: JP)
  Receive Date: 20240425
  Receipt Date: 20240425
  Transmission Date: 20240715
  Serious: Yes (Other)
  Sender: FDA-Public Use
  Company Number: JP-Merck Healthcare KGaA-2024020629

PATIENT
  Age: 66 Year
  Sex: Male

DRUGS (1)
  1. TEPMETKO [Suspect]
     Active Substance: TEPOTINIB HYDROCHLORIDE
     Indication: Lung squamous cell carcinoma stage IV
     Route: 048

REACTIONS (3)
  - Pulmonary toxicity [Recovering/Resolving]
  - Organising pneumonia [Recovering/Resolving]
  - Blood creatinine increased [Recovering/Resolving]
